FAERS Safety Report 7171338-2 (Version None)
Quarter: 2010Q4

REPORT INFORMATION
  Report Type: 
  Country: None (occurrence: None)
  Receive Date: 20101217
  Receipt Date: 20101206
  Transmission Date: 20110411
  Serious: Yes (Other)
  Sender: FDA-Public Use
  Company Number: US-ELI_LILLY_AND_COMPANY-US200912006121

PATIENT
  Sex: Female

DRUGS (3)
  1. FORTEO [Suspect]
     Indication: OSTEOPOROSIS
     Dosage: 20 UG, DAILY (1/D)
     Route: 065
     Dates: start: 20090101, end: 20090101
  2. VITAMINS [Concomitant]
     Dosage: UNK, UNKNOWN
     Route: 065
  3. TYLENOL (CAPLET) [Concomitant]
     Indication: BACK PAIN

REACTIONS (6)
  - FALL [None]
  - HEART RATE IRREGULAR [None]
  - LUNG NEOPLASM MALIGNANT [None]
  - NEOPLASM MALIGNANT [None]
  - SPINAL FRACTURE [None]
  - WRIST FRACTURE [None]
